FAERS Safety Report 21208724 (Version 1)
Quarter: 2022Q3

REPORT INFORMATION
  Report Type: Report from Study
  Country: JP (occurrence: JP)
  Receive Date: 20220812
  Receipt Date: 20220812
  Transmission Date: 20221027
  Serious: Yes (Other)
  Sender: FDA-Public Use
  Company Number: JP-GSKJP-JP2022JPN115987

PATIENT
  Age: 67 Year
  Sex: Female

DRUGS (2)
  1. TENOFOVIR DISOPROXIL FUMARATE [Suspect]
     Active Substance: TENOFOVIR DISOPROXIL FUMARATE
     Indication: Chronic hepatitis B
     Route: 065
  2. ENTECAVIR [Concomitant]
     Active Substance: ENTECAVIR
     Indication: Chronic hepatitis B
     Dosage: UNK

REACTIONS (6)
  - Hypophosphataemic osteomalacia [Unknown]
  - Renal tubular disorder [Unknown]
  - Bone pain [Unknown]
  - Arthralgia [Unknown]
  - Hypophosphataemia [Unknown]
  - Proteinuria [Unknown]
